FAERS Safety Report 18512123 (Version 1)
Quarter: 2020Q4

REPORT INFORMATION
  Report Type: Spontaneous
  Country: GB (occurrence: GB)
  Receive Date: 20201117
  Receipt Date: 20201117
  Transmission Date: 20210114
  Serious: Yes (Other)
  Sender: FDA-Public Use
  Company Number: GB-MYLANLABS-2020M1094154

PATIENT
  Age: 75 Year
  Sex: Female
  Weight: 63.5 kg

DRUGS (10)
  1. FERROUS SULFATE. [Concomitant]
     Active Substance: FERROUS SULFATE
     Dosage: UNK
  2. PARACETAMOL [Concomitant]
     Active Substance: ACETAMINOPHEN
     Dosage: UNK
  3. MIDODRINE [Concomitant]
     Active Substance: MIDODRINE
     Dosage: UNK
  4. BISOPROLOL [Suspect]
     Active Substance: BISOPROLOL
     Indication: HYPERTENSION
     Dosage: 7.5 MILLIGRAM, QD
     Route: 048
     Dates: start: 20201008, end: 20201013
  5. ALENDRONIC ACID [Concomitant]
     Active Substance: ALENDRONIC ACID
     Dosage: UNK
  6. QUININE SULFATE. [Concomitant]
     Active Substance: QUININE SULFATE
     Dosage: UNK
  7. PANTOPRAZOLE [Concomitant]
     Active Substance: PANTOPRAZOLE
     Dosage: UNK
  8. COLECALCIFEROL [Concomitant]
     Active Substance: CHOLECALCIFEROL
     Dosage: UNK
  9. AMITRIPTYLINE [Concomitant]
     Active Substance: AMITRIPTYLINE
     Dosage: UNK
  10. HYOSCINE BUTYLBROMIDE [Concomitant]
     Active Substance: BUTYLSCOPOLAMINE BROMIDE
     Dosage: UNK

REACTIONS (2)
  - Blood pressure decreased [Recovering/Resolving]
  - Accidental overdose [Unknown]

NARRATIVE: CASE EVENT DATE: 20201013
